FAERS Safety Report 12733766 (Version 1)
Quarter: 2016Q3

REPORT INFORMATION
  Report Type: Spontaneous
  Country: US (occurrence: US)
  Receive Date: 20160912
  Receipt Date: 20160912
  Transmission Date: 20161109
  Serious: No
  Sender: FDA-Public Use
  Company Number: US-009507513-1608USA012075

PATIENT
  Age: 37 Year
  Sex: Female
  Weight: 98.41 kg

DRUGS (1)
  1. NEXPLANON [Suspect]
     Active Substance: ETONOGESTREL
     Indication: CONTRACEPTION
     Dosage: 1 IMPLANT/ ^3 YEAR OLD^
     Route: 059

REACTIONS (4)
  - Metrorrhagia [Unknown]
  - Dizziness [Unknown]
  - Hypoaesthesia [Unknown]
  - Cyanosis [Unknown]

NARRATIVE: CASE EVENT DATE: 201508
